FAERS Safety Report 19441884 (Version 2)
Quarter: 2021Q2

REPORT INFORMATION
  Report Type: Report from Study
  Country: PL (occurrence: PL)
  Receive Date: 20210621
  Receipt Date: 20210623
  Transmission Date: 20210717
  Serious: Yes (Life-Threatening, Hospitalization)
  Sender: FDA-Public Use
  Company Number: PL-JNJFOC-20210634114

PATIENT
  Age: 35 Year
  Sex: Female
  Weight: 55 kg

DRUGS (3)
  1. GUSELKUMAB [Suspect]
     Active Substance: GUSELKUMAB
  2. GUSELKUMAB [Suspect]
     Active Substance: GUSELKUMAB
     Indication: COLITIS ULCERATIVE
     Route: 058
     Dates: start: 20200916, end: 20210616
  3. ASAMAX [Concomitant]
     Active Substance: MESALAMINE
     Dosage: 3 TIMES 1000 MG PER DAY
     Dates: start: 201705

REACTIONS (2)
  - Syncope [Recovered/Resolved]
  - Syncope [Recovering/Resolving]

NARRATIVE: CASE EVENT DATE: 20210616
